FAERS Safety Report 5030251-7 (Version None)
Quarter: 2006Q2

REPORT INFORMATION
  Report Type: 
  Country: None (occurrence: None)
  Receive Date: 20060620
  Receipt Date: 20050224
  Transmission Date: 20061013
  Serious: Yes (Hospitalization, Disabling)
  Sender: FDA-Public Use
  Company Number: US-ROCHE-396865

PATIENT
  Age: 31 Year
  Sex: Female
  Weight: 87.5 kg

DRUGS (2)
  1. ACCUTANE [Suspect]
     Indication: ACNE
     Dosage: IT WAS REPORTED THAT ON 17 JUNE 1997, THE PATIENT WAS STARTED ON ACCUTANE 80/120.
     Route: 048
     Dates: start: 19970617, end: 19971015
  2. XENICAL [Suspect]
     Route: 048
     Dates: start: 20010115, end: 20010409

REACTIONS (70)
  - ABORTION SPONTANEOUS [None]
  - ANHEDONIA [None]
  - ARTHRALGIA [None]
  - BACK INJURY [None]
  - BACK PAIN [None]
  - BETA HAEMOLYTIC STREPTOCOCCAL INFECTION [None]
  - BLOOD THYROID STIMULATING HORMONE DECREASED [None]
  - CARDIAC DISORDER [None]
  - CHEST DISCOMFORT [None]
  - CHEST PAIN [None]
  - CHOLECYSTITIS [None]
  - CHOLELITHIASIS [None]
  - CONDYLOMA ACUMINATUM [None]
  - COUGH [None]
  - CYSTITIS [None]
  - DEPRESSION [None]
  - DIARRHOEA [None]
  - DIZZINESS [None]
  - DRUG EXPOSURE DURING PREGNANCY [None]
  - ECTOPIC PREGNANCY [None]
  - ELECTROCARDIOGRAM ABNORMAL [None]
  - EMOTIONAL DISORDER [None]
  - EPISTAXIS [None]
  - FALL [None]
  - FOCAL GLOMERULOSCLEROSIS [None]
  - FURUNCLE [None]
  - GALLBLADDER DISORDER [None]
  - GASTROOESOPHAGEAL REFLUX DISEASE [None]
  - GOITRE [None]
  - GROIN ABSCESS [None]
  - HEADACHE [None]
  - HERPES SIMPLEX [None]
  - HIGH DENSITY LIPOPROTEIN DECREASED [None]
  - HYPERSENSITIVITY [None]
  - HYPERTENSION [None]
  - HYPOACUSIS [None]
  - INSOMNIA [None]
  - INTERTRIGO CANDIDA [None]
  - LOW DENSITY LIPOPROTEIN INCREASED [None]
  - LUNG NEOPLASM [None]
  - MALIGNANT HYPERTENSION [None]
  - MENORRHAGIA [None]
  - MICROCYTIC ANAEMIA [None]
  - MULTI-ORGAN DISORDER [None]
  - NAUSEA [None]
  - NECK PAIN [None]
  - OBESITY [None]
  - OEDEMA PERIPHERAL [None]
  - PANIC ATTACK [None]
  - PELVIC INFLAMMATORY DISEASE [None]
  - PREGNANCY [None]
  - PROTEINURIA [None]
  - RENAL DISORDER [None]
  - RENAL FAILURE [None]
  - ROAD TRAFFIC ACCIDENT [None]
  - SUICIDE ATTEMPT [None]
  - TENDONITIS [None]
  - TENSION HEADACHE [None]
  - THYROID DISORDER [None]
  - UPPER RESPIRATORY TRACT INFECTION [None]
  - URINARY TRACT INFECTION [None]
  - UTERINE TENDERNESS [None]
  - VAGINAL DISCHARGE [None]
  - VAGINAL HAEMORRHAGE [None]
  - VAGINITIS BACTERIAL [None]
  - VERTIGO [None]
  - VISION BLURRED [None]
  - VOMITING [None]
  - VULVOVAGINAL MYCOTIC INFECTION [None]
  - WEIGHT INCREASED [None]
